FAERS Safety Report 23280317 (Version 1)
Quarter: 2023Q4

REPORT INFORMATION
  Report Type: Other
  Country: None (occurrence: US)
  Receive Date: 20231210
  Receipt Date: 20231210
  Transmission Date: 20240110
  Serious: Yes (Death)
  Sender: FDA-Public Use
  Company Number: US-OrBion Pharmaceuticals Private Limited-2149180

PATIENT
  Age: 72 Year
  Sex: Female

DRUGS (1)
  1. TERBINAFINE HYDROCHLORIDE [Suspect]
     Active Substance: TERBINAFINE HYDROCHLORIDE
     Indication: Onychomycosis
     Route: 065

REACTIONS (4)
  - Rhabdomyolysis [Fatal]
  - Acute kidney injury [Fatal]
  - Drug-induced liver injury [Fatal]
  - Hepatic failure [Fatal]
